FAERS Safety Report 14891908 (Version 1)
Quarter: 2018Q2

REPORT INFORMATION
  Report Type: Spontaneous
  Country: BR (occurrence: BR)
  Receive Date: 20180514
  Receipt Date: 20180514
  Transmission Date: 20180711
  Serious: Yes (Hospitalization)
  Sender: FDA-Public Use
  Company Number: BR-SA-2018SA134150

PATIENT
  Age: 14 Month

DRUGS (1)
  1. INSULIN GLARGINE [Suspect]
     Active Substance: INSULIN GLARGINE
     Indication: TYPE 1 DIABETES MELLITUS
     Route: 065

REACTIONS (7)
  - Vomiting [Recovering/Resolving]
  - Metabolic acidosis [Recovering/Resolving]
  - Blood glucose fluctuation [Recovering/Resolving]
  - Polyuria [Recovering/Resolving]
  - Polydipsia [Recovering/Resolving]
  - Dyspnoea [Recovering/Resolving]
  - Diabetic ketoacidosis [Recovering/Resolving]
